FAERS Safety Report 22057880 (Version 5)
Quarter: 2023Q1

REPORT INFORMATION
  Report Type: Report from Study
  Country: PT (occurrence: PT)
  Receive Date: 20230303
  Receipt Date: 20230327
  Transmission Date: 20230417
  Serious: Yes (Other)
  Sender: FDA-Public Use
  Company Number: PT-ABBVIE-4325912

PATIENT
  Age: 65 Year
  Sex: Male

DRUGS (8)
  1. CARBIDOPA\LEVODOPA [Suspect]
     Active Substance: CARBIDOPA\LEVODOPA
     Indication: Parkinson^s disease
     Dosage: 20 MG PLUS 5 MG, FREQUENCY TEXT: MORN:11CC;MAINT:3.4CC/H;EXTRA:4CC
     Route: 050
     Dates: start: 20230227, end: 202303
  2. CARBIDOPA\LEVODOPA [Suspect]
     Active Substance: CARBIDOPA\LEVODOPA
     Dosage: 20 MG + 5 MG, FREQUENCY TEXT: MORN:8CC;MAINT:2.8CC/H;EXTRA:1CC?LAST ADMIN DATE 2023
     Route: 050
     Dates: start: 20230213
  3. CARBIDOPA\LEVODOPA [Suspect]
     Active Substance: CARBIDOPA\LEVODOPA
     Dosage: 20 MG + 5 MG? FREQUENCY TEXT: MORN:8CC;MAINT:2.8CC/H;EXTRA:1CC
     Route: 050
     Dates: start: 202303, end: 202303
  4. CARBIDOPA\LEVODOPA [Suspect]
     Active Substance: CARBIDOPA\LEVODOPA
     Dosage: FREQUENCY TEXT: MORN:11CC;MAINT:3.4CC/H;EXTRA:4CC?20 MG + 5 MG
     Route: 050
     Dates: start: 20230314
  5. DOMPERIDONE [Concomitant]
     Active Substance: DOMPERIDONE
     Indication: Product used for unknown indication
     Dosage: TIME INTERVAL: 0.33333333 DAYS: STRENGTH: 10 MILLIGRAM ?BEFORE DUODOPA
     Route: 048
  6. CLONAZEPAM-R [Concomitant]
     Indication: Product used for unknown indication
     Dosage: 1 MILLILITER, STRENGTH: 2.5 MILLIGRAM/MILLILITERS?AT BEDTIME  BEFORE DUODOPA
     Route: 048
  7. ULTRA FOLIC ACID [Concomitant]
     Indication: Product used for unknown indication
     Dosage: 0.4MG + 0.002MG, FREQUENCY TEXT: 1 TABLET AT LUNCH?AFTER DUODOPA, FORM STRENGTH 2.5 MILLIGRAM/MIL...
     Route: 048
  8. BENSERAZIDE\LEVODOPA [Concomitant]
     Active Substance: BENSERAZIDE\LEVODOPA
     Indication: Parkinson^s disease
     Dosage: 100MG + 25MG, FREQUENCY TEXT: 2 TABLETS AT BEDTIME?BEFORE DUODOPA
     Route: 048

REACTIONS (6)
  - Cystitis [Recovered/Resolved]
  - Body temperature increased [Recovered/Resolved]
  - Dysuria [Recovered/Resolved]
  - Pyrexia [Recovered/Resolved]
  - Dysuria [Recovered/Resolved]
  - Pollakiuria [Recovered/Resolved]

NARRATIVE: CASE EVENT DATE: 20230228
